FAERS Safety Report 20640904 (Version 3)
Quarter: 2022Q2

REPORT INFORMATION
  Report Type: Spontaneous
  Country: US (occurrence: US)
  Receive Date: 20220327
  Receipt Date: 20220526
  Transmission Date: 20220720
  Serious: Yes (Hospitalization)
  Sender: FDA-Public Use
  Company Number: US-ELI_LILLY_AND_COMPANY-US202203011110

PATIENT
  Sex: Female

DRUGS (1)
  1. INSULIN LISPRO [Suspect]
     Active Substance: INSULIN LISPRO
     Indication: Product used for unknown indication
     Dosage: 2 U, UNKNOWN
     Route: 065
     Dates: start: 20220320, end: 20220321

REACTIONS (3)
  - Tooth abscess [Unknown]
  - Blood glucose increased [Unknown]
  - Wrong patient received product [Unknown]
